FAERS Safety Report 7577979 (Version 3)
Quarter: 2013Q3

REPORT INFORMATION
  Report Type: Report from Study
  Country: AU (occurrence: AU)
  Receive Date: 20100909
  Receipt Date: 20130812
  Transmission Date: 20140515
  Serious: Yes (Death)
  Sender: FDA-Public Use
  Company Number: AU-ROCHE-725042

PATIENT
  Sex: Female
  Weight: 92.9 kg

DRUGS (4)
  1. OSELTAMIVIR [Suspect]
     Indication: INFLUENZA
     Route: 042
  2. PIPERACILLIN/TAZOBACTAM [Concomitant]
     Route: 042
  3. CIPROFLOXACIN [Concomitant]
     Route: 042
  4. VANCOMYCIN [Concomitant]
     Route: 042

REACTIONS (1)
  - Death [Fatal]
